FAERS Safety Report 7364280-5 (Version None)
Quarter: 2011Q1

REPORT INFORMATION
  Report Type: 
  Country: None (occurrence: None)
  Receive Date: 20110321
  Receipt Date: 20110311
  Transmission Date: 20110831
  Serious: Yes (Hospitalization)
  Sender: FDA-Public Use
  Company Number: B0698970A

PATIENT
  Sex: Female
  Weight: 71.4 kg

DRUGS (1)
  1. AVANDIA [Suspect]
     Indication: DIABETES MELLITUS
     Dosage: 4MG TWICE PER DAY
     Route: 048
     Dates: end: 20040901

REACTIONS (4)
  - CAROTID ARTERY STENOSIS [None]
  - CHEST PAIN [None]
  - HYPERTENSIVE HEART DISEASE [None]
  - HYPERLIPIDAEMIA [None]
